FAERS Safety Report 11895954 (Version 1)
Quarter: 2016Q1

REPORT INFORMATION
  Report Type: Spontaneous
  Country: US (occurrence: US)
  Receive Date: 20160107
  Receipt Date: 20160107
  Transmission Date: 20160526
  Serious: Yes (Other)
  Sender: FDA-Public Use
  Company Number: PHHY2015US171031

PATIENT
  Age: 15 Year
  Sex: Female

DRUGS (1)
  1. METHAZOLAMIDE. [Suspect]
     Active Substance: METHAZOLAMIDE
     Indication: ARTHRITIS
     Dosage: 25 MG, QW
     Route: 048

REACTIONS (4)
  - Polyuria [Recovered/Resolved]
  - Diffuse alopecia [Recovered/Resolved]
  - Arthralgia [Recovered/Resolved]
  - Drug administration error [Unknown]
